FAERS Safety Report 23658809 (Version 1)
Quarter: 2024Q1

REPORT INFORMATION
  Report Type: Spontaneous
  Country: GB (occurrence: GB)
  Receive Date: 20240321
  Receipt Date: 20240321
  Transmission Date: 20240409
  Serious: Yes (Other)
  Sender: FDA-Public Use
  Company Number: None

PATIENT
  Age: 65 Year
  Sex: Male
  Weight: 103 kg

DRUGS (20)
  1. DOXAZOSIN [Suspect]
     Active Substance: DOXAZOSIN MESYLATE
     Route: 065
     Dates: start: 20240228
  2. AMITRIPTYLINE HYDROCHLORIDE [Concomitant]
     Active Substance: AMITRIPTYLINE HYDROCHLORIDE
     Dosage: AT NIGHT
     Dates: start: 20231204
  3. NYSTATIN [Concomitant]
     Active Substance: NYSTATIN
     Dates: start: 20230710
  4. CARBAMIDE PEROXIDE [Concomitant]
     Active Substance: CARBAMIDE PEROXIDE
     Dosage: USE AS DIRECTED  (THIS IS A BRAND OF SODIUM CRO...
     Dates: start: 20230710
  5. NOVORAPID [Concomitant]
     Active Substance: INSULIN ASPART
     Dosage: USE AS DIRECTED BY THE HOSPITAL DIABETIC CLINIC
     Dates: start: 20230710
  6. FIASP [Concomitant]
     Active Substance: INSULIN ASPART
     Dosage: USE AS DIRECTED BY THE DIABETES TEAM.
     Dates: start: 20230710
  7. TRESIBA [Concomitant]
     Active Substance: INSULIN DEGLUDEC
     Dosage: USE AS DIRECTED BY DIABETES TEAM
     Dates: start: 20230710
  8. FELODIPINE [Concomitant]
     Active Substance: FELODIPINE
     Dates: start: 20240129, end: 20240228
  9. BECLOMETHASONE DIPROPIONATE [Concomitant]
     Active Substance: BECLOMETHASONE DIPROPIONATE
     Dosage: INTO EACH NOSTRIL, (MORN..
     Dates: start: 20230710
  10. VIAGRA [Concomitant]
     Active Substance: SILDENAFIL CITRATE
     Dosage: USE AS DIRECTED SLS
     Dates: start: 20230710
  11. LOSARTAN [Concomitant]
     Active Substance: LOSARTAN
     Dates: start: 20231027
  12. VENLAFAXINE [Concomitant]
     Active Substance: VENLAFAXINE HYDROCHLORIDE
     Dates: start: 20230710
  13. CLOTRIMAZOLE [Concomitant]
     Active Substance: CLOTRIMAZOLE
     Dosage: APPLY 2-3 TIMES/DAY
     Dates: start: 20230710
  14. TRAMADOL [Concomitant]
     Active Substance: TRAMADOL\TRAMADOL HYDROCHLORIDE
     Dosage: TIME INTERVAL: AS NECESSARY: 1 OR 2 FOUR TIMES A DAY
     Dates: start: 20231122
  15. POTASSIUM BICARBONATE\SODIUM ALGINATE [Concomitant]
     Active Substance: POTASSIUM BICARBONATE\SODIUM ALGINATE
     Dosage: 5ML - 10ML UP TO 4 TIMES/DAY AFTER MEALS AND AT...
     Dates: start: 20230710
  16. FLUCLOXACILLIN [Concomitant]
     Active Substance: FLUCLOXACILLIN
     Dates: start: 20231214, end: 20231221
  17. ACETAMINOPHEN [Concomitant]
     Active Substance: ACETAMINOPHEN
     Dosage: IF WEIGHT GREATER THAN 50KG: TAKE ONE OR TWO TA...
     Dates: start: 20230710
  18. ASPIRIN [Concomitant]
     Active Substance: ASPIRIN
     Dates: start: 20230710
  19. PROPRANOLOL [Concomitant]
     Active Substance: PROPRANOLOL HYDROCHLORIDE
     Dosage: TIME INTERVAL: 0.33333333 DAYS
     Dates: start: 20230710
  20. ATORVASTATIN [Concomitant]
     Active Substance: ATORVASTATIN
     Dates: start: 20230710

REACTIONS (1)
  - Joint swelling [Not Recovered/Not Resolved]
